FAERS Safety Report 18000857 (Version 1)
Quarter: 2020Q3

REPORT INFORMATION
  Report Type: Spontaneous
  Country: None (occurrence: NO)
  Receive Date: 20200709
  Receipt Date: 20200709
  Transmission Date: 20201103
  Serious: Yes (Hospitalization)
  Sender: FDA-Public Use
  Company Number: NO-FRESENIUS KABI-FK201602414

PATIENT
  Age: 63 Year
  Sex: Female

DRUGS (6)
  1. MANNITOL (MANUFACTURER UNKNOWN) [Suspect]
     Active Substance: MANNITOL
     Indication: DIAGNOSTIC PROCEDURE
     Dosage: 500 ML
     Route: 048
     Dates: start: 20160414, end: 20160414
  2. GLUCAGON. [Suspect]
     Active Substance: GLUCAGON
     Indication: DIAGNOSTIC PROCEDURE
     Dosage: 1 MG/ML
     Route: 040
     Dates: start: 20160414, end: 20160414
  3. GADODIAMIDE [Suspect]
     Active Substance: GADODIAMIDE
     Route: 065
  4. MANNITOL (MANUFACTURER UNKNOWN) [Suspect]
     Active Substance: MANNITOL
     Indication: OFF LABEL USE
     Dosage: 150 MG/ML
     Route: 048
     Dates: start: 20160414, end: 20160414
  5. GLUCAGON. [Suspect]
     Active Substance: GLUCAGON
     Route: 065
  6. GADODIAMIDE [Suspect]
     Active Substance: GADODIAMIDE
     Indication: DIAGNOSTIC PROCEDURE
     Dosage: 0.5 MMOL/ML
     Route: 040
     Dates: start: 20160414, end: 20160414

REACTIONS (6)
  - Vomiting [Unknown]
  - Malaise [Unknown]
  - Muscular weakness [Unknown]
  - Dizziness [Unknown]
  - Chills [Unknown]
  - Nausea [Unknown]

NARRATIVE: CASE EVENT DATE: 20160414
